FAERS Safety Report 5009221-0 (Version None)
Quarter: 2006Q2

REPORT INFORMATION
  Report Type: 
  Country: None (occurrence: None)
  Receive Date: 20060519
  Receipt Date: 20060508
  Transmission Date: 20061013
  Serious: Yes (Death)
  Sender: FDA-Public Use
  Company Number: 2006-01104

PATIENT
  Sex: 0

DRUGS (2)
  1. VELCADE [Suspect]
     Dosage: 1.30 MG/M2, INTRAVENOUS
     Route: 042
  2. ACYCLOVIR [Concomitant]

REACTIONS (1)
  - DISEASE PROGRESSION [None]
